FAERS Safety Report 22653107 (Version 1)
Quarter: 2023Q2

REPORT INFORMATION
  Report Type: Spontaneous
  Country: PT (occurrence: PT)
  Receive Date: 20230629
  Receipt Date: 20230629
  Transmission Date: 20230721
  Serious: Yes (Other)
  Sender: FDA-Public Use
  Company Number: None

PATIENT
  Age: 17 Year
  Sex: Female
  Weight: 45 kg

DRUGS (9)
  1. GABAPENTIN [Suspect]
     Active Substance: GABAPENTIN
     Indication: Neuralgia
     Dosage: PROGRESSIVE INCREASE FROM 100MG 3X/DAY TO 300MG 3X/DAY. ON 03/14 THE DOSE WAS REDUCED TO 200+200+10
     Dates: start: 20230219
  2. MAGNESIUM ASPARTATE HYDROCHLORIDE [Concomitant]
     Active Substance: MAGNESIUM ASPARTATE HYDROCHLORIDE
     Indication: Product used for unknown indication
     Dosage: 3 DOSAGE FORMS DAILY; 3 SACHETS/DAY
  3. OMEPRAZOLE [Concomitant]
     Active Substance: OMEPRAZOLE
     Indication: Product used for unknown indication
     Dosage: 40 MILLIGRAM DAILY; 20 MG TWICE A DAY
  4. BACTRIM [Concomitant]
     Active Substance: SULFAMETHOXAZOLE\TRIMETHOPRIM
     Indication: Product used for unknown indication
     Dosage: 30 ML DAILY; 15 ML 12/12H 2, 4, 6 FAIRS
  5. DIAZEPAM [Concomitant]
     Active Substance: DIAZEPAM
     Indication: Product used for unknown indication
     Dosage: 10 MILLIGRAM DAILY; 5MG + 5MG/DAY
  6. SERTRALINE [Concomitant]
     Active Substance: SERTRALINE HYDROCHLORIDE
     Indication: Product used for unknown indication
     Dosage: 75 MILLIGRAM DAILY; 75 MG 1X/DAY
  7. SINGULAIR [Concomitant]
     Active Substance: MONTELUKAST SODIUM
     Indication: Product used for unknown indication
     Dosage: 10 MILLIGRAM DAILY; AT NIGHT
  8. DIENOGEST\ETHINYL ESTRADIOL [Concomitant]
     Active Substance: DIENOGEST\ETHINYL ESTRADIOL
     Indication: Product used for unknown indication
     Dosage: 1 DOSAGE FORMS DAILY; 1 TABLET/DAY
  9. DEXAMETHASONE [Concomitant]
     Active Substance: DEXAMETHASONE
     Indication: Product used for unknown indication
     Dosage: 1.5 MILLIGRAM DAILY; 0.5 MG 3X/DAY

REACTIONS (2)
  - Ear pain [Recovered/Resolved]
  - Headache [Recovered/Resolved]

NARRATIVE: CASE EVENT DATE: 20230312
